FAERS Safety Report 8007552-3 (Version None)
Quarter: 2011Q4

REPORT INFORMATION
  Report Type: 
  Country: None (occurrence: None)
  Receive Date: 20111227
  Receipt Date: 20111216
  Transmission Date: 20120403
  Serious: Yes (Other)
  Sender: FDA-Public Use
  Company Number: US-NOVOPROD-338230

PATIENT

DRUGS (8)
  1. GLYBURIDE [Concomitant]
  2. EZETIMIBE [Concomitant]
  3. METFORMIN [Concomitant]
  4. ASPIRIN [Concomitant]
  5. INSULIN GLARGINE [Concomitant]
  6. NOVOLOG [Suspect]
     Indication: TYPE 2 DIABETES MELLITUS
  7. PIOGLITAZONE [Concomitant]
  8. ACITRETIN [Concomitant]

REACTIONS (1)
  - INJECTION SITE ABSCESS [None]
